FAERS Safety Report 15780993 (Version 2)
Quarter: 2024Q4

REPORT INFORMATION
  Report Type: Spontaneous
  Country: US (occurrence: US)
  Receive Date: 20190102
  Receipt Date: 20241127
  Transmission Date: 20250114
  Serious: Yes (Death, Life-Threatening, Other)
  Sender: ALKEM
  Company Number: None

PATIENT
  Age: 25 Year
  Sex: Male

DRUGS (3)
  1. MYCOPHENOLATE MOFETIL [Suspect]
     Active Substance: MYCOPHENOLATE MOFETIL
     Indication: Graft versus host disease
     Dosage: UNK
     Route: 065
  2. FLUCONAZOLE [Suspect]
     Active Substance: FLUCONAZOLE
     Indication: Antifungal prophylaxis
     Dosage: UNK
     Route: 065
  3. METHYLPREDNISOLONE [Suspect]
     Active Substance: METHYLPREDNISOLONE
     Indication: Graft versus host disease
     Dosage: UNK
     Route: 065

REACTIONS (3)
  - Respiratory failure [Fatal]
  - Bronchopulmonary aspergillosis [Fatal]
  - Pneumonia [Fatal]
